FAERS Safety Report 14264543 (Version 3)
Quarter: 2019Q1

REPORT INFORMATION
  Report Type: Spontaneous
  Country: US (occurrence: US)
  Receive Date: 20171208
  Receipt Date: 20190220
  Transmission Date: 20190417
  Serious: Yes (Other)
  Sender: FDA-Public Use
  Company Number: US-VIFOR (INTERNATIONAL) INC.-VIT-2017-08084

PATIENT
  Age: 91 Year
  Sex: Female
  Weight: 53.57 kg

DRUGS (20)
  1. MACROBID [Concomitant]
     Active Substance: NITROFURANTOIN\NITROFURANTOIN MONOHYDRATE
  2. NORVASC [Concomitant]
     Active Substance: AMLODIPINE BESYLATE
  3. AZOPT [Concomitant]
     Active Substance: BRINZOLAMIDE
  4. CARVEDILOL. [Concomitant]
     Active Substance: CARVEDILOL
  5. DOC-Q-LAX [Concomitant]
  6. PANTOPRAZOLE SODIUM. [Concomitant]
     Active Substance: PANTOPRAZOLE SODIUM
  7. VITAMIN B12 [Concomitant]
     Active Substance: CYANOCOBALAMIN
  8. VELTASSA [Suspect]
     Active Substance: PATIROMER
     Indication: HYPERKALAEMIA
     Route: 048
     Dates: start: 20160603
  9. ANASTROZOLE. [Concomitant]
     Active Substance: ANASTROZOLE
  10. CALTRATE 600 PLUS D PLUS MINERALS [Concomitant]
  11. FERROUS SULFATE. [Concomitant]
     Active Substance: FERROUS SULFATE
  12. PLAVIX [Concomitant]
     Active Substance: CLOPIDOGREL BISULFATE
  13. SODIUM POLYSTYRENE SULFONATE. [Concomitant]
     Active Substance: SODIUM POLYSTYRENE SULFONATE
  14. SIMVASTATIN. [Concomitant]
     Active Substance: SIMVASTATIN
  15. AMITIZA [Concomitant]
     Active Substance: LUBIPROSTONE
  16. VITAMIN D3 [Concomitant]
     Active Substance: CHOLECALCIFEROL
  17. ASPIRIN 81 [Concomitant]
     Active Substance: ASPIRIN
  18. LISINOPRIL. [Concomitant]
     Active Substance: LISINOPRIL
  19. OMEGA 3 [Concomitant]
     Active Substance: OMEGA-3 FATTY ACIDS
  20. AMLODIPINE BESYLATE. [Concomitant]
     Active Substance: AMLODIPINE BESYLATE

REACTIONS (5)
  - Vertigo [Recovered/Resolved]
  - Product solubility abnormal [Recovered/Resolved]
  - Product taste abnormal [Recovered/Resolved]
  - Inappropriate schedule of product administration [Unknown]
  - Breast cancer [Unknown]

NARRATIVE: CASE EVENT DATE: 201707
